FAERS Safety Report 17777721 (Version 2)
Quarter: 2020Q2

REPORT INFORMATION
  Report Type: Spontaneous
  Country: AU (occurrence: AU)
  Receive Date: 20200513
  Receipt Date: 20200526
  Transmission Date: 20200714
  Serious: Yes (Other)
  Sender: FDA-Public Use
  Company Number: AU-STRIDES ARCOLAB LIMITED-2020SP005704

PATIENT
  Age: 48 Year
  Sex: Female
  Weight: 70 kg

DRUGS (4)
  1. MELOXICAM. [Suspect]
     Active Substance: MELOXICAM
     Indication: INFLAMMATION
  2. TAMSULOSIN [Suspect]
     Active Substance: TAMSULOSIN
     Indication: PRODUCT USED FOR UNKNOWN INDICATION
     Dosage: 1 DOSAGE FORM (TABLET) DAILY
     Route: 065
     Dates: start: 20200105
  3. MELOXICAM. [Suspect]
     Active Substance: MELOXICAM
     Indication: PAIN
     Dosage: 15 MILLIGRAM, QD WHEN REQUIRED
     Route: 065
     Dates: start: 202002
  4. APO-DIAZEPAM [Suspect]
     Active Substance: DIAZEPAM
     Indication: ANXIETY
     Dosage: 2 MILLIGRAM,1 TABLET BEFORE BED WHEN NECESSARY
     Route: 065
     Dates: start: 20200414, end: 20200504

REACTIONS (5)
  - Hallucination [Recovered/Resolved]
  - Insomnia [Unknown]
  - Euphoric mood [Unknown]
  - Fatigue [Unknown]
  - Central nervous system stimulation [Unknown]

NARRATIVE: CASE EVENT DATE: 20200414
